FAERS Safety Report 18628059 (Version 1)
Quarter: 2020Q4

REPORT INFORMATION
  Report Type: Spontaneous
  Country: US (occurrence: US)
  Receive Date: 20201216
  Receipt Date: 20201216
  Transmission Date: 20210114
  Serious: Yes (Life-Threatening, Hospitalization)
  Sender: FDA-Public Use
  Company Number: None

PATIENT
  Age: 67 Year
  Sex: Male

DRUGS (2)
  1. SACUBITRIL/VALSARTAN (SACUBITIRL 24MG/VALSARTAN 26MG TAB) [Suspect]
     Active Substance: SACUBITRIL\VALSARTAN
     Indication: HYPERTENSION
     Dosage: ?          OTHER DOSE:24/26MG;?
     Route: 048
     Dates: start: 20200923, end: 20201029
  2. SACUBITRIL/VALSARTAN (SACUBITIRL 24MG/VALSARTAN 26MG TAB) [Suspect]
     Active Substance: SACUBITRIL\VALSARTAN
     Indication: CARDIAC FAILURE CONGESTIVE
     Dosage: ?          OTHER DOSE:24/26MG;?
     Route: 048
     Dates: start: 20200923, end: 20201029

REACTIONS (7)
  - Syncope [None]
  - Dizziness [None]
  - Fall [None]
  - Fatigue [None]
  - Blood pressure systolic decreased [None]
  - Therapy interrupted [None]
  - Hypotension [None]

NARRATIVE: CASE EVENT DATE: 20201029
